FAERS Safety Report 17675225 (Version 1)
Quarter: 2020Q2

REPORT INFORMATION
  Report Type: Spontaneous
  Country: US (occurrence: US)
  Receive Date: 20200416
  Receipt Date: 20200416
  Transmission Date: 20200714
  Serious: Yes (Other)
  Sender: FDA-Public Use
  Company Number: US-GLAXOSMITHKLINE-US2020AMR065275

PATIENT
  Sex: Female

DRUGS (1)
  1. LAMICTAL [Suspect]
     Active Substance: LAMOTRIGINE
     Indication: PRODUCT USED FOR UNKNOWN INDICATION
     Dosage: UNK
     Route: 065
     Dates: start: 201503, end: 2019

REACTIONS (11)
  - Cold sweat [Unknown]
  - Pyrexia [Not Recovered/Not Resolved]
  - Influenza like illness [Unknown]
  - Oropharyngeal pain [Unknown]
  - Autoinflammatory disease [Unknown]
  - Ill-defined disorder [Recovered/Resolved]
  - Drug level fluctuating [Unknown]
  - Drug reaction with eosinophilia and systemic symptoms [Unknown]
  - Influenza [Unknown]
  - Chills [Unknown]
  - Lymphadenopathy [Unknown]

NARRATIVE: CASE EVENT DATE: 2015
